FAERS Safety Report 23249164 (Version 2)
Quarter: 2024Q1

REPORT INFORMATION
  Report Type: Spontaneous
  Country: US (occurrence: None)
  Receive Date: 20231201
  Receipt Date: 20240102
  Transmission Date: 20240410
  Serious: No
  Sender: FDA-Public Use
  Company Number: 2023A259751

PATIENT
  Age: 24688 Day
  Sex: Female

DRUGS (1)
  1. FASENRA [Suspect]
     Active Substance: BENRALIZUMAB
     Indication: Asthma
     Route: 058
     Dates: start: 20230301, end: 20230401

REACTIONS (5)
  - Psoriasis [Unknown]
  - Skin exfoliation [Unknown]
  - Lung disorder [Unknown]
  - Cough [Unknown]
  - Wheezing [Unknown]
